FAERS Safety Report 6371676-7 (Version None)
Quarter: 2009Q3

REPORT INFORMATION
  Report Type: 
  Country: None (occurrence: None)
  Receive Date: 20090923
  Receipt Date: 20081210
  Transmission Date: 20100115
  Serious: Yes (Other)
  Sender: FDA-Public Use
  Company Number: US-ASTRAZENECA-2008UW12264

PATIENT
  Age: 56 Year
  Sex: Female
  Weight: 88.5 kg

DRUGS (6)
  1. SEROQUEL [Suspect]
     Indication: ANXIETY
     Dosage: 100MG, 200MG
     Route: 048
     Dates: start: 20011201, end: 20050801
  2. SEROQUEL [Suspect]
     Indication: DEPRESSION
     Dosage: 100MG, 200MG
     Route: 048
     Dates: start: 20011201, end: 20050801
  3. ABILIFY [Concomitant]
  4. EFFEXOR [Concomitant]
  5. TRAZODONE HCL [Concomitant]
     Dates: start: 20031110, end: 20060201
  6. XANAX [Concomitant]

REACTIONS (4)
  - CHEST PAIN [None]
  - NERVOUSNESS [None]
  - SUICIDAL IDEATION [None]
  - TYPE 2 DIABETES MELLITUS [None]
